FAERS Safety Report 9196990 (Version 6)
Quarter: 2014Q2

REPORT INFORMATION
  Report Type: Spontaneous
  Country: US (occurrence: US)
  Receive Date: 20130328
  Receipt Date: 20140606
  Transmission Date: 20141212
  Serious: Yes (Hospitalization)
  Sender: FDA-Public Use
  Company Number: US-JNJFOC-20130312159

PATIENT
  Age: 84 Year
  Sex: Male
  Weight: 77 kg

DRUGS (2)
  1. XARELTO [Suspect]
     Indication: CEREBROVASCULAR ACCIDENT PROPHYLAXIS
     Route: 048
     Dates: start: 20121224, end: 20130101
  2. XARELTO [Suspect]
     Indication: ATRIAL FIBRILLATION
     Route: 048
     Dates: start: 20121224, end: 20130101

REACTIONS (9)
  - Haematemesis [Unknown]
  - Anaemia [Unknown]
  - Rectal haemorrhage [Unknown]
  - Hypotension [Unknown]
  - Deep vein thrombosis [Unknown]
  - Hypovolaemic shock [Unknown]
  - Duodenal ulcer [Unknown]
  - International normalised ratio increased [Unknown]
  - Upper gastrointestinal haemorrhage [Recovered/Resolved]
